FAERS Safety Report 6382663-7 (Version None)
Quarter: 2009Q3

REPORT INFORMATION
  Report Type: 
  Country: None (occurrence: None)
  Receive Date: 20090930
  Receipt Date: 20090918
  Transmission Date: 20100115
  Serious: No
  Sender: FDA-Public Use
  Company Number: US-B.I. PHARMACEUTICALS,INC./RIDGEFIELD-2009-BP-11412BP

PATIENT

DRUGS (1)
  1. SPIRIVA [Suspect]
     Route: 048

REACTIONS (1)
  - INCORRECT ROUTE OF DRUG ADMINISTRATION [None]
